FAERS Safety Report 12811064 (Version 1)
Quarter: 2016Q4

REPORT INFORMATION
  Report Type: Spontaneous
  Country: US (occurrence: US)
  Receive Date: 20161005
  Receipt Date: 20161005
  Transmission Date: 20170207
  Serious: No
  Sender: FDA-Public Use
  Company Number: None

PATIENT
  Age: 60 Year
  Sex: Female
  Weight: 135 kg

DRUGS (4)
  1. VITAMIN B12 [Concomitant]
     Active Substance: CYANOCOBALAMIN
  2. GLUCOSAMINE/CHONDROTIN [Concomitant]
  3. VITAMIN D [Concomitant]
     Active Substance: CHOLECALCIFEROL
  4. ALENDRONATE SODIUM 70 NORTHSTAR RX LL [Suspect]
     Active Substance: ALENDRONATE SODIUM
     Indication: OSTEOPOROSIS
     Dosage: 3 (TOTAL FOR 3 WEEKS)
     Route: 048
     Dates: start: 20160908, end: 20160922

REACTIONS (6)
  - Arthralgia [None]
  - Groin pain [None]
  - Abdominal distension [None]
  - Pain in extremity [None]
  - Abdominal discomfort [None]
  - Influenza like illness [None]

NARRATIVE: CASE EVENT DATE: 20160915
